FAERS Safety Report 9052694 (Version 2)
Quarter: 2013Q4

REPORT INFORMATION
  Report Type: Spontaneous
  Country: IT (occurrence: IT)
  Receive Date: 20130207
  Receipt Date: 20131017
  Transmission Date: 20140711
  Serious: Yes (Death)
  Sender: FDA-Public Use
  Company Number: IT-SANOFI-AVENTIS-2013SA007774

PATIENT
  Age: 62 Year
  Sex: Female

DRUGS (2)
  1. DOCETAXEL [Suspect]
     Indication: BREAST CANCER STAGE IV
     Route: 042
     Dates: start: 20130118, end: 20130118
  2. EPIRUBICIN HYDROCHLORIDE [Concomitant]
     Indication: BREAST CANCER STAGE IV
     Dates: start: 20130118, end: 20130118

REACTIONS (3)
  - Ovarian necrosis [Fatal]
  - Gastrointestinal necrosis [Fatal]
  - Peritonitis [Fatal]
